FAERS Safety Report 16161947 (Version 1)
Quarter: 2019Q2

REPORT INFORMATION
  Report Type: Spontaneous
  Country: AT (occurrence: AT)
  Receive Date: 20190405
  Receipt Date: 20190405
  Transmission Date: 20190711
  Serious: Yes (Life-Threatening, Other)
  Sender: FDA-Public Use
  Company Number: AT-ACCORD-117057

PATIENT
  Age: 31 Year
  Sex: Male

DRUGS (13)
  1. NOVALGIN (METAMIZOLE SODIUM) [Concomitant]
     Active Substance: METAMIZOLE SODIUM
     Dosage: MAX. UP TO 3XDIE PRN
     Dates: start: 20181212, end: 20181218
  2. RISPERDAL [Suspect]
     Active Substance: RISPERIDONE
     Indication: PRODUCT USED FOR UNKNOWN INDICATION
     Dosage: DOSAGE FORM: UNSPECIFIED
     Route: 065
     Dates: start: 20181208, end: 201901
  3. ATORVASTATIN [Concomitant]
     Active Substance: ATORVASTATIN
     Dosage: DOSAGE FORM: UNSPECIFIED
     Route: 065
     Dates: start: 20181217
  4. DOMINAL [Concomitant]
     Dates: start: 20181122
  5. ESCITALOPRAM [Concomitant]
     Active Substance: ESCITALOPRAM OXALATE
     Dosage: DOSAGE FORM: UNSPECIFIED
     Route: 065
     Dates: start: 20181130, end: 20181205
  6. LOVENOX [Concomitant]
     Active Substance: ENOXAPARIN SODIUM
     Dates: start: 20181117, end: 20181218
  7. PANTOLOC [Concomitant]
     Active Substance: PANTOPRAZOLE SODIUM
     Dosage: DOSAGE FORM: UNSPECIFIED
     Route: 065
     Dates: start: 20181120
  8. NICORETTE [Concomitant]
     Active Substance: NICOTINE
     Dosage: DOSAGE FORM: UNSPECIFIED
     Route: 065
     Dates: start: 201812
  9. THROMBO ASS [Concomitant]
     Active Substance: ASPIRIN
     Dosage: DOSAGE FORM: UNSPECIFIED
     Route: 065
     Dates: start: 20181120, end: 20181218
  10. PARACETAMOL [Concomitant]
     Active Substance: ACETAMINOPHEN
     Dosage: MAX. UP TO 2XDIE PRN
     Dates: start: 20181206, end: 20181218
  11. QUETIAPINE. [Suspect]
     Active Substance: QUETIAPINE
     Indication: PRODUCT USED FOR UNKNOWN INDICATION
     Route: 065
     Dates: start: 20181207, end: 20181212
  12. TEMESTA [Concomitant]
     Dosage: DOSAGE FORM: UNSPECIFIED
     Route: 065
     Dates: start: 20181120, end: 201901
  13. PREGABALIN. [Concomitant]
     Active Substance: PREGABALIN
     Dosage: DOSAGE FORM: UNSPECIFIED
     Route: 065
     Dates: start: 20181210, end: 20181211

REACTIONS (1)
  - Pulmonary embolism [Recovered/Resolved]

NARRATIVE: CASE EVENT DATE: 20181218
